FAERS Safety Report 24182650 (Version 1)
Quarter: 2024Q3

REPORT INFORMATION
  Report Type: Spontaneous
  Country: CN (occurrence: CN)
  Receive Date: 20240807
  Receipt Date: 20240807
  Transmission Date: 20241017
  Serious: Yes (Hospitalization, Other)
  Sender: GLAND PHARMA
  Company Number: CN-GLANDPHARMA-CN-2024GLNLIT00578

PATIENT
  Age: 73 Year
  Sex: Male

DRUGS (13)
  1. VANCOMYCIN HYDROCHLORIDE [Suspect]
     Active Substance: VANCOMYCIN HYDROCHLORIDE
     Indication: Antibiotic prophylaxis
     Route: 065
     Dates: start: 20220520
  2. VANCOMYCIN HYDROCHLORIDE [Suspect]
     Active Substance: VANCOMYCIN HYDROCHLORIDE
     Indication: Antibiotic prophylaxis
  3. MOXIFLOXACIN [Suspect]
     Active Substance: MOXIFLOXACIN
     Indication: Psittacosis
     Route: 065
     Dates: start: 20220517
  4. MOXIFLOXACIN [Suspect]
     Active Substance: MOXIFLOXACIN
     Route: 065
     Dates: start: 20220518
  5. MOXIFLOXACIN [Suspect]
     Active Substance: MOXIFLOXACIN
     Route: 065
     Dates: start: 20220520
  6. DOXYCYCLINE [Suspect]
     Active Substance: DOXYCYCLINE\DOXYCYCLINE HYCLATE
     Indication: Psittacosis
     Route: 065
     Dates: start: 20220518
  7. DOXYCYCLINE [Suspect]
     Active Substance: DOXYCYCLINE\DOXYCYCLINE HYCLATE
     Route: 065
     Dates: start: 20220520
  8. DOXYCYCLINE [Suspect]
     Active Substance: DOXYCYCLINE\DOXYCYCLINE HYCLATE
     Route: 048
  9. HEPARIN SODIUM [Suspect]
     Active Substance: HEPARIN SODIUM
     Indication: Product used for unknown indication
     Route: 065
     Dates: start: 20220520
  10. CEFOPERAZONE SODIUM [Concomitant]
     Active Substance: CEFOPERAZONE SODIUM
     Route: 065
  11. SULBACTAM SODIUM [Concomitant]
     Active Substance: SULBACTAM SODIUM
     Route: 065
  12. MEROPENEM [Concomitant]
     Active Substance: MEROPENEM
     Indication: Psittacosis
     Route: 065
  13. MEROPENEM [Concomitant]
     Active Substance: MEROPENEM
     Indication: Infection

REACTIONS (3)
  - Liver injury [Recovering/Resolving]
  - Renal injury [Recovering/Resolving]
  - Product use in unapproved indication [Unknown]
